FAERS Safety Report 8784742 (Version 1)
Quarter: 2012Q4

REPORT INFORMATION
  Report Type: 
  Country: JP (occurrence: JP)
  Receive Date: 20120914
  Receipt Date: 20120914
  Transmission Date: 20130627
  Serious: Yes (Other)
  Sender: FDA-Public Use
  Company Number: JP-PFIZER INC-2012227118

PATIENT
  Age: 77 Year
  Sex: Male

DRUGS (1)
  1. LYRICA [Suspect]
     Indication: NECK PAIN
     Dosage: 25 mg, 2x/day
     Dates: start: 20120913

REACTIONS (2)
  - Anal haemorrhage [Unknown]
  - Malaise [Unknown]
